FAERS Safety Report 4985968-7 (Version None)
Quarter: 2006Q2

REPORT INFORMATION
  Report Type: 
  Country: None (occurrence: None)
  Receive Date: 20060421
  Receipt Date: 20060412
  Transmission Date: 20061013
  Serious: Yes (Death)
  Sender: FDA-Public Use
  Company Number: JP-2006-008906

PATIENT
  Age: 58 Year
  Sex: Male

DRUGS (6)
  1. SOTALOL             (BETAPACE)        (SOTALOL HYDROCHLORIDE) [Suspect]
     Dosage: 20 MG, 2X/DAY,  ORAL
     Route: 048
     Dates: start: 20041022
  2. BLOPRESS             (CANDESARTAN CILEXETIL) [Concomitant]
  3. LASIX [Concomitant]
  4. LIPITOR [Concomitant]
  5. TICLOPIDINE HCL [Concomitant]
  6. SIGMART                  (NICORANDIL) [Concomitant]

REACTIONS (1)
  - DEATH [None]
